FAERS Safety Report 21337240 (Version 3)
Quarter: 2022Q4

REPORT INFORMATION
  Report Type: Report from Study
  Country: BR (occurrence: BR)
  Receive Date: 20220915
  Receipt Date: 20221122
  Transmission Date: 20230113
  Serious: Yes (Other)
  Sender: FDA-Public Use
  Company Number: BR-AMRYT PHARMACEUTICALS DAC-AEGR006017

PATIENT

DRUGS (19)
  1. METRELEPTIN [Suspect]
     Active Substance: METRELEPTIN
     Indication: Acquired generalised lipodystrophy
     Dosage: 0.75 MILLILITER, QD
     Route: 058
     Dates: start: 201607, end: 202105
  2. METRELEPTIN [Suspect]
     Active Substance: METRELEPTIN
     Dosage: 1.0 MILLILITER
     Dates: start: 201909
  3. METRELEPTIN [Suspect]
     Active Substance: METRELEPTIN
     Dosage: 1.25 MILLILITER
     Dates: start: 201911
  4. METRELEPTIN [Suspect]
     Active Substance: METRELEPTIN
     Dosage: 0.5 MILLILITER
     Dates: start: 202008
  5. METRELEPTIN [Suspect]
     Active Substance: METRELEPTIN
     Dosage: 0.75 MILLILITER
     Dates: start: 202010
  6. METRELEPTIN [Suspect]
     Active Substance: METRELEPTIN
     Dosage: 1.0 MILLILITER
     Dates: start: 202011
  7. METRELEPTIN [Suspect]
     Active Substance: METRELEPTIN
     Dosage: 1.25 MILLILITER
     Dates: start: 202101
  8. METRELEPTIN [Suspect]
     Active Substance: METRELEPTIN
     Dosage: 1.25 MILLILITER
     Dates: start: 202103
  9. METRELEPTIN [Suspect]
     Active Substance: METRELEPTIN
     Dosage: 0.5-1.25 MILLILITER
     Dates: start: 202108
  10. METRELEPTIN [Suspect]
     Active Substance: METRELEPTIN
     Dosage: 1.25 MILLILITER
     Dates: start: 202110
  11. METRELEPTIN [Suspect]
     Active Substance: METRELEPTIN
     Dosage: 0.75 MILLILITER
     Dates: start: 202110
  12. METRELEPTIN [Suspect]
     Active Substance: METRELEPTIN
     Dosage: 0.75 MILLILITER
     Dates: start: 202111
  13. METRELEPTIN [Suspect]
     Active Substance: METRELEPTIN
     Dosage: 0.75 MILLILITER
     Dates: start: 202201
  14. METRELEPTIN [Suspect]
     Active Substance: METRELEPTIN
     Dosage: 0.75 MILLILITER
     Dates: start: 202204
  15. METRELEPTIN [Suspect]
     Active Substance: METRELEPTIN
     Dosage: 0.75 MILLILITER, QD
     Route: 058
     Dates: start: 201607, end: 202105
  16. PROTAMINE ZINC INSULIN INJECTION [Concomitant]
     Indication: Type 1 diabetes mellitus
     Dosage: VARIABLE, QD
     Route: 058
  17. PROTAMINE ZINC INSULIN INJECTION [Concomitant]
     Indication: Acquired generalised lipodystrophy
  18. INSULIN HUMAN [Concomitant]
     Active Substance: INSULIN HUMAN
     Indication: Type 1 diabetes mellitus
     Dosage: VARIABLE, QD
     Route: 058
     Dates: start: 2013
  19. INSULIN HUMAN [Concomitant]
     Active Substance: INSULIN HUMAN
     Indication: Acquired generalised lipodystrophy

REACTIONS (5)
  - Autoimmune hepatitis [Not Recovered/Not Resolved]
  - Hyperglycaemia [Not Recovered/Not Resolved]
  - Hypertriglyceridaemia [Unknown]
  - Product supply issue [Unknown]
  - Therapy interrupted [Unknown]

NARRATIVE: CASE EVENT DATE: 20211001
